FAERS Safety Report 10661772 (Version 1)
Quarter: 2014Q4

REPORT INFORMATION
  Report Type: Spontaneous
  Country: US (occurrence: None)
  Receive Date: 20141217
  Receipt Date: 20141217
  Transmission Date: 20150529
  Serious: Yes (Hospitalization)
  Sender: FDA-Public Use
  Company Number: None

PATIENT
  Age: 55 Year
  Sex: Female
  Weight: 99.79 kg

DRUGS (1)
  1. LITHIUM CARBONATE. [Suspect]
     Active Substance: LITHIUM CARBONATE
     Indication: BIPOLAR DISORDER

REACTIONS (7)
  - Renal failure [None]
  - Speech disorder [None]
  - Aphasia [None]
  - Leukocytosis [None]
  - Dehydration [None]
  - Dizziness [None]
  - Abasia [None]

NARRATIVE: CASE EVENT DATE: 20140901
